FAERS Safety Report 7734948-7 (Version None)
Quarter: 2011Q3

REPORT INFORMATION
  Report Type: 
  Country: None (occurrence: None)
  Receive Date: 20110907
  Receipt Date: 20110830
  Transmission Date: 20111222
  Serious: Yes (Hospitalization)
  Sender: FDA-Public Use
  Company Number: PHHY2011BR39518

PATIENT
  Sex: Female

DRUGS (2)
  1. FORMOTEROL FUMARATE [Suspect]
     Indication: ASTHMA
     Dosage: UNK UKN, BID
  2. ALBUTEROL SULATE [Concomitant]

REACTIONS (3)
  - INFECTION [None]
  - TREMOR [None]
  - ASTHMA [None]
